FAERS Safety Report 9320981 (Version 1)
Quarter: 2013Q2

REPORT INFORMATION
  Report Type: Spontaneous
  Country: US (occurrence: None)
  Receive Date: 20130529
  Receipt Date: 20130529
  Transmission Date: 20140414
  Serious: Yes (Hospitalization)
  Sender: FDA-Public Use
  Company Number: None

PATIENT
  Age: 78 Year
  Sex: Male
  Weight: 64.4 kg

DRUGS (15)
  1. CARBOPLATIN [Suspect]
  2. PACLITAXEL (TAXOL) [Suspect]
  3. CLINDAMYCIN TOPICAL [Concomitant]
  4. DEXAMETHASONE [Concomitant]
  5. DILTIAZEM [Concomitant]
  6. DIPHENHYDRAMINE [Concomitant]
  7. DOXYCYLINE [Concomitant]
  8. FAMATODINE [Concomitant]
  9. GABAPENTIN [Concomitant]
  10. MAGNESIUM OXIDE [Concomitant]
  11. MAGNESIUM SULFATE [Concomitant]
  12. MULTIVITAMIN [Concomitant]
  13. ONDANSETRON [Concomitant]
  14. RANITIDINE [Concomitant]
  15. TRAZADONE [Concomitant]

REACTIONS (2)
  - Neutropenia [None]
  - Abdominal pain [None]
